FAERS Safety Report 4878702-2 (Version None)
Quarter: 2006Q1

REPORT INFORMATION
  Report Type: 
  Country: None (occurrence: None)
  Receive Date: 20060112
  Receipt Date: 20060103
  Transmission Date: 20060701
  Serious: Yes (Hospitalization)
  Sender: FDA-Public Use
  Company Number: MX-AVENTIS-200610143GDDC

PATIENT
  Age: 19 Year
  Sex: Female
  Weight: 55 kg

DRUGS (1)
  1. TAXOTERE [Suspect]
     Indication: NON-HODGKIN'S LYMPHOMA
     Route: 037
     Dates: start: 20051220, end: 20051220

REACTIONS (7)
  - APHONIA [None]
  - ASTHENIA [None]
  - DYSPNOEA [None]
  - EYE PAIN [None]
  - HEADACHE [None]
  - MUSCULAR WEAKNESS [None]
  - NEUROTOXICITY [None]
